FAERS Safety Report 9536544 (Version 1)
Quarter: 2013Q3

REPORT INFORMATION
  Report Type: Spontaneous
  Country: FR (occurrence: FR)
  Receive Date: 20130919
  Receipt Date: 20130919
  Transmission Date: 20140515
  Serious: Yes (Hospitalization)
  Sender: FDA-Public Use
  Company Number: FR-JNJFOC-20130905447

PATIENT
  Age: 87 Year
  Sex: Male

DRUGS (9)
  1. HALDOL [Suspect]
     Indication: FAILURE TO THRIVE
     Dosage: 8DROPS ONCE A DAY
     Route: 048
     Dates: start: 201201, end: 20120209
  2. EFFEXOR [Suspect]
     Indication: FAILURE TO THRIVE
     Dosage: (8 MONTHS)
     Route: 048
     Dates: start: 201201, end: 201209
  3. AMLOR 5 [Concomitant]
     Route: 065
  4. LAMALINE [Concomitant]
     Route: 065
  5. PREVISCAN (FLUINDIONE) [Concomitant]
     Route: 065
  6. SIMVASTATINE [Concomitant]
     Route: 065
  7. VENLAFAXINE [Concomitant]
     Route: 065
  8. INSULATARD NOS [Concomitant]
     Route: 065
  9. KEPPRA [Concomitant]
     Route: 065

REACTIONS (3)
  - Extrapyramidal disorder [Recovered/Resolved]
  - General physical health deterioration [Unknown]
  - Off label use [Unknown]
